FAERS Safety Report 8953514 (Version 1)
Quarter: 2012Q4

REPORT INFORMATION
  Report Type: 
  Country: DE (occurrence: DE)
  Receive Date: 20121206
  Receipt Date: 20121206
  Transmission Date: 20130627
  Serious: Yes (Life-Threatening, Hospitalization, Congenital Anomaly, Other)
  Sender: FDA-Public Use
  Company Number: DE-MYLANLABS-2012S1024273

PATIENT
  Age: 0 Year
  Sex: Female
  Weight: 3.81 kg

DRUGS (1)
  1. FLUOXETINE [Suspect]
     Dosage: 20 [mg/d ]
     Route: 064

REACTIONS (6)
  - Exposure during pregnancy [Unknown]
  - Neonatal asphyxia [Recovered/Resolved with Sequelae]
  - Persistent foetal circulation [Recovered/Resolved]
  - Atelectasis neonatal [Recovered/Resolved]
  - Atrial septal defect [Unknown]
  - Patent ductus arteriosus [Recovered/Resolved]
